FAERS Safety Report 8814127 (Version 1)
Quarter: 2012Q4

REPORT INFORMATION
  Report Type: Spontaneous
  Country: US (occurrence: None)
  Receive Date: 20120925
  Receipt Date: 20120925
  Transmission Date: 20130627
  Serious: Yes (Other)
  Sender: FDA-Public Use
  Company Number: FK201202734

PATIENT
  Age: 19 Year
  Sex: Female

DRUGS (5)
  1. MEPIVACAINE [Suspect]
  2. ROPIVACAINE [Suspect]
  3. DEXAMETHASONE [Suspect]
  4. NSAIDS [Concomitant]
  5. TYLENOL (PARACETAMOL) [Concomitant]

REACTIONS (5)
  - Muscular weakness [None]
  - Sensory disturbance [None]
  - Fatigue [None]
  - Dysphagia [None]
  - Discomfort [None]
